FAERS Safety Report 16292115 (Version 2)
Quarter: 2021Q1

REPORT INFORMATION
  Report Type: Spontaneous
  Country: US (occurrence: US)
  Receive Date: 20190509
  Receipt Date: 20210219
  Transmission Date: 20210419
  Serious: Yes (Other)
  Sender: FDA-Public Use
  Company Number: US-ASTRAZENECA-2019SE62732

PATIENT
  Age: 52 Year
  Sex: Male
  Weight: 102.1 kg

DRUGS (40)
  1. PREVACID [Suspect]
     Active Substance: LANSOPRAZOLE
     Indication: GASTROOESOPHAGEAL REFLUX DISEASE
     Route: 065
     Dates: start: 199501, end: 201701
  2. OXYCONTIN [Concomitant]
     Active Substance: OXYCODONE HYDROCHLORIDE
     Indication: PAIN MANAGEMENT
     Dates: start: 20090717, end: 20151014
  3. FENTANYL. [Concomitant]
     Active Substance: FENTANYL
  4. LACTULOSE. [Concomitant]
     Active Substance: LACTULOSE
  5. ADVAIR HFA [Concomitant]
     Active Substance: FLUTICASONE PROPIONATE\SALMETEROL XINAFOATE
     Indication: CHRONIC OBSTRUCTIVE PULMONARY DISEASE
     Dates: start: 20170907, end: 20171129
  6. METHADONE [Concomitant]
     Active Substance: METHADONE HYDROCHLORIDE
  7. MORPHINE [Concomitant]
     Active Substance: MORPHINE
  8. ANDRODERM [Concomitant]
     Active Substance: TESTOSTERONE
  9. LOTEMAX [Concomitant]
     Active Substance: LOTEPREDNOL ETABONATE
  10. PRILOSEC [Suspect]
     Active Substance: OMEPRAZOLE MAGNESIUM
     Indication: GASTROOESOPHAGEAL REFLUX DISEASE
     Route: 048
     Dates: start: 1995, end: 2002
  11. PROAIR HFA [Concomitant]
     Active Substance: ALBUTEROL SULFATE
  12. TRAZODONE [Concomitant]
     Active Substance: TRAZODONE HYDROCHLORIDE
  13. PREDNISONE. [Concomitant]
     Active Substance: PREDNISONE
  14. CEFUROXIME. [Concomitant]
     Active Substance: CEFUROXIME
  15. SIMVASTATIN. [Concomitant]
     Active Substance: SIMVASTATIN
  16. OXYCODONE [Concomitant]
     Active Substance: OXYCODONE
     Indication: PAIN MANAGEMENT
     Dates: start: 20090717, end: 20130711
  17. CETIRIZINE [Concomitant]
     Active Substance: CETIRIZINE HYDROCHLORIDE
     Indication: MULTIPLE ALLERGIES
     Dates: start: 20150107, end: 20151031
  18. CALCITRIOL. [Concomitant]
     Active Substance: CALCITRIOL
     Indication: PSORIASIS
     Dates: start: 20140812, end: 20150619
  19. IOPHEN [Concomitant]
  20. SYMBICORT [Concomitant]
     Active Substance: BUDESONIDE\FORMOTEROL FUMARATE DIHYDRATE
  21. NEXIUM [Suspect]
     Active Substance: ESOMEPRAZOLE MAGNESIUM
     Indication: GASTROOESOPHAGEAL REFLUX DISEASE
     Route: 048
     Dates: start: 2009, end: 2017
  22. ALBUTEROL. [Concomitant]
     Active Substance: ALBUTEROL
  23. CEFUROXIME. [Concomitant]
     Active Substance: CEFUROXIME
  24. NEXIUM [Suspect]
     Active Substance: ESOMEPRAZOLE MAGNESIUM
     Indication: GASTROOESOPHAGEAL REFLUX DISEASE
     Route: 048
     Dates: start: 199501, end: 201701
  25. DESOXIMETASONE. [Concomitant]
     Active Substance: DESOXIMETASONE
  26. FUROSEMIDE. [Concomitant]
     Active Substance: FUROSEMIDE
  27. CYMBALTA [Concomitant]
     Active Substance: DULOXETINE HYDROCHLORIDE
  28. VYTORIN [Concomitant]
     Active Substance: EZETIMIBE\SIMVASTATIN
  29. LEVOFLOXACIN. [Concomitant]
     Active Substance: LEVOFLOXACIN
  30. PREVACID [Suspect]
     Active Substance: LANSOPRAZOLE
     Indication: GASTROOESOPHAGEAL REFLUX DISEASE
     Route: 065
     Dates: start: 199501, end: 200201
  31. OXYCONTIN [Concomitant]
     Active Substance: OXYCODONE HYDROCHLORIDE
     Dates: start: 20090717, end: 20151014
  32. ENDOCET [Concomitant]
     Active Substance: ACETAMINOPHEN\OXYCODONE HYDROCHLORIDE
  33. TESTOSTERONE. [Concomitant]
     Active Substance: TESTOSTERONE
  34. FISH OIL [Concomitant]
     Active Substance: FISH OIL
  35. CALCITRIOL. [Concomitant]
     Active Substance: CALCITRIOL
  36. PRILOSEC [Suspect]
     Active Substance: OMEPRAZOLE MAGNESIUM
     Indication: GASTROOESOPHAGEAL REFLUX DISEASE
     Route: 048
     Dates: start: 199501, end: 201701
  37. FLUOXETINE [Concomitant]
     Active Substance: FLUOXETINE HYDROCHLORIDE
  38. VITAMIN D [Concomitant]
     Active Substance: VITAMIN D NOS
  39. SERTRALINE [Concomitant]
     Active Substance: SERTRALINE HYDROCHLORIDE
  40. LYRICA [Concomitant]
     Active Substance: PREGABALIN

REACTIONS (2)
  - Acute kidney injury [Unknown]
  - Chronic kidney disease [Not Recovered/Not Resolved]

NARRATIVE: CASE EVENT DATE: 2001
